FAERS Safety Report 15248619 (Version 1)
Quarter: 2018Q3

REPORT INFORMATION
  Report Type: Spontaneous
  Country: US (occurrence: US)
  Receive Date: 20180715
  Receipt Date: 20180715
  Transmission Date: 20181010
  Serious: Yes (Hospitalization)
  Sender: FDA-Public Use
  Company Number: None

PATIENT
  Age: 54 Year
  Sex: Female

DRUGS (31)
  1. AZITHROMYCIN ANHYDROUS. [Concomitant]
     Active Substance: AZITHROMYCIN ANHYDROUS
  2. FELCAINADE [Concomitant]
  3. SERTRALINE [Concomitant]
     Active Substance: SERTRALINE HYDROCHLORIDE
  4. TACLONEX OIN [Concomitant]
  5. TACLONEX SUS [Concomitant]
  6. LEVOTHYROXIN [Concomitant]
     Active Substance: LEVOTHYROXINE
  7. SULFA ANTIBIOTICS [Concomitant]
  8. SULFONAMIDE DERIATIVES [Concomitant]
  9. TRIAMCINOLONE CRE [Concomitant]
  10. METHOTREXATE. [Concomitant]
     Active Substance: METHOTREXATE
  11. ACTOS [Concomitant]
     Active Substance: PIOGLITAZONE HYDROCHLORIDE
  12. TRAMADOL HCL [Concomitant]
     Active Substance: TRAMADOL HYDROCHLORIDE
  13. RANITIDINE. [Concomitant]
     Active Substance: RANITIDINE
  14. ASPIRIN. [Concomitant]
     Active Substance: ASPIRIN
  15. DEMEROL [Concomitant]
     Active Substance: MEPERIDINE HYDROCHLORIDE
  16. METOPROLOL. [Concomitant]
     Active Substance: METOPROLOL
  17. TETRACYCLINE [Concomitant]
     Active Substance: TETRACYCLINE
  18. CEPHELOSPORINS [Concomitant]
  19. ALBUTEROL. [Concomitant]
     Active Substance: ALBUTEROL
  20. HYDROCHLOROT [Concomitant]
     Active Substance: HYDROCHLOROTHIAZIDE
  21. SYMPATHOMIMETICS [Concomitant]
     Active Substance: UNSPECIFIED INGREDIENT
  22. ZYRTEC ALLERGY TAB [Concomitant]
  23. NYSTAT/TRIAM CRE [Concomitant]
  24. TYLENOL [Concomitant]
     Active Substance: ACETAMINOPHEN
  25. LEVAQUIN [Concomitant]
     Active Substance: LEVOFLOXACIN
  26. PENICILLINS [Concomitant]
     Active Substance: PENICILLIN
  27. STELARA [Suspect]
     Active Substance: USTEKINUMAB
     Indication: PSORIASIS
     Dosage: ?          OTHER FREQUENCY:EVERY 12 WEEKS;?
     Route: 058
     Dates: start: 20130925
  28. GABAPENTIN. [Concomitant]
     Active Substance: GABAPENTIN
  29. FOLIC ACID. [Concomitant]
     Active Substance: FOLIC ACID
  30. CLINDAMYCIN. [Concomitant]
     Active Substance: CLINDAMYCIN
  31. MORPHINE AND RELATED [Concomitant]

REACTIONS (1)
  - Surgery [None]

NARRATIVE: CASE EVENT DATE: 20180423
